FAERS Safety Report 7152370-1 (Version None)
Quarter: 2010Q4

REPORT INFORMATION
  Report Type: 
  Country: None (occurrence: None)
  Receive Date: 20101209
  Receipt Date: 20101209
  Transmission Date: 20110411
  Serious: Yes (Death)
  Sender: FDA-Public Use
  Company Number: None

PATIENT
  Age: 54 Year
  Sex: Female
  Weight: 102.0593 kg

DRUGS (1)
  1. EPOGEN [Suspect]
     Dates: end: 20100710

REACTIONS (1)
  - PRODUCT QUALITY ISSUE [None]
